FAERS Safety Report 10549251 (Version 6)
Quarter: 2015Q3

REPORT INFORMATION
  Report Type: Spontaneous
  Country: US (occurrence: US)
  Receive Date: 20141028
  Receipt Date: 20150817
  Transmission Date: 20151125
  Serious: No
  Sender: FDA-Public Use
  Company Number: US-GLAXOSMITHKLINE-US2014GSK013126

PATIENT
  Sex: Female
  Weight: 52.6 kg

DRUGS (8)
  1. VOTRIENT [Suspect]
     Active Substance: PAZOPANIB HYDROCHLORIDE
     Indication: RENAL CANCER
     Dosage: 800 MG, QD
     Route: 048
     Dates: start: 201409
  2. MICARDIS [Concomitant]
     Active Substance: TELMISARTAN
  3. CLONIDINE. [Concomitant]
     Active Substance: CLONIDINE
     Dosage: 0.2 MG, WE
  4. VOTRIENT [Suspect]
     Active Substance: PAZOPANIB HYDROCHLORIDE
     Indication: MALIGNANT NEOPLASM OF RENAL PELVIS
     Dosage: 800 MG, 1D
     Route: 048
  5. VOTRIENT [Suspect]
     Active Substance: PAZOPANIB HYDROCHLORIDE
     Indication: PANCREATIC DISORDER
  6. ASPIRIN. [Concomitant]
     Active Substance: ASPIRIN
  7. ZOLOFT [Concomitant]
     Active Substance: SERTRALINE HYDROCHLORIDE
  8. CALCIUM [Concomitant]
     Active Substance: CALCIUM

REACTIONS (11)
  - Alopecia [Unknown]
  - Diarrhoea [Recovering/Resolving]
  - Dry mouth [Unknown]
  - Fatigue [Unknown]
  - Chromaturia [Unknown]
  - Wound [Recovered/Resolved]
  - Impaired healing [Recovered/Resolved]
  - Blood pressure increased [Unknown]
  - Constipation [Unknown]
  - Decreased appetite [Unknown]
  - Dysgeusia [Recovering/Resolving]
